FAERS Safety Report 10724313 (Version 2)
Quarter: 2015Q1

REPORT INFORMATION
  Report Type: Spontaneous
  Country: US (occurrence: US)
  Receive Date: 20150120
  Receipt Date: 20150212
  Transmission Date: 20150721
  Serious: Yes (Other)
  Sender: FDA-Public Use
  Company Number: US-BAYER-2015-008198

PATIENT
  Age: 25 Year
  Sex: Female

DRUGS (1)
  1. SKYLA [Suspect]
     Active Substance: LEVONORGESTREL
     Dosage: 14 MCG/24HR, CONT
     Route: 015
     Dates: start: 20140330, end: 201501

REACTIONS (5)
  - Post procedural haemorrhage [None]
  - Pelvic pain [None]
  - Drug ineffective [None]
  - Ectopic pregnancy with contraceptive device [None]
  - Human chorionic gonadotropin decreased [None]

NARRATIVE: CASE EVENT DATE: 201501
